FAERS Safety Report 18196794 (Version 1)
Quarter: 2020Q3

REPORT INFORMATION
  Report Type: Spontaneous
  Country: US (occurrence: US)
  Receive Date: 20200826
  Receipt Date: 20200826
  Transmission Date: 20201103
  Serious: No
  Sender: FDA-Public Use
  Company Number: US-SA-2020SA227202

PATIENT

DRUGS (4)
  1. XHANCE [Concomitant]
     Active Substance: FLUTICASONE PROPIONATE
  2. MONTELUKAST [Concomitant]
     Active Substance: MONTELUKAST SODIUM
  3. DUPIXENT [Suspect]
     Active Substance: DUPILUMAB
     Indication: ASTHMA
     Dosage: 200 MG, QOW
     Route: 058
     Dates: start: 20200131
  4. SYMBICORT [Concomitant]
     Active Substance: BUDESONIDE\FORMOTEROL FUMARATE DIHYDRATE

REACTIONS (1)
  - Tongue ulceration [Not Recovered/Not Resolved]

NARRATIVE: CASE EVENT DATE: 20200622
